FAERS Safety Report 20241571 (Version 7)
Quarter: 2025Q1

REPORT INFORMATION
  Report Type: Spontaneous
  Country: US (occurrence: US)
  Receive Date: 20211228
  Receipt Date: 20250213
  Transmission Date: 20250409
  Serious: Yes (Other)
  Sender: PFIZER
  Company Number: US-PFIZER INC-202101685181

PATIENT
  Age: 67 Year
  Sex: Male

DRUGS (1)
  1. XELJANZ XR [Suspect]
     Active Substance: TOFACITINIB CITRATE
     Indication: Rheumatoid arthritis
     Dosage: 11 MG TAKE 1 TABLET DAILY
     Route: 048

REACTIONS (5)
  - Tenoplasty [Unknown]
  - Pain [Unknown]
  - Infection [Unknown]
  - Dermal cyst [Unknown]
  - Trigger finger [Not Recovered/Not Resolved]
